FAERS Safety Report 9381394 (Version 1)
Quarter: 2013Q3

REPORT INFORMATION
  Report Type: Spontaneous
  Country: DE (occurrence: DE)
  Receive Date: 20130703
  Receipt Date: 20130703
  Transmission Date: 20140515
  Serious: Yes (Other)
  Sender: FDA-Public Use
  Company Number: PHHY2013DE067432

PATIENT
  Sex: Female
  Weight: 81 kg

DRUGS (1)
  1. ZOMETA [Suspect]
     Indication: BREAST CANCER
     Dosage: 1 DF DOSAGE FORM EVERY 4 WEEKS
     Dates: start: 20120109, end: 20130429

REACTIONS (2)
  - Osteomyelitis [Unknown]
  - Jaw disorder [Unknown]
